FAERS Safety Report 8324726-2 (Version None)
Quarter: 2012Q1

REPORT INFORMATION
  Report Type: 
  Country: None (occurrence: None)
  Receive Date: 20120315
  Receipt Date: 20110603
  Transmission Date: 20120608
  Serious: No
  Sender: FDA-Public Use
  Company Number: PHHY2011US29879

PATIENT
  Age: 37 Year
  Sex: Male
  Weight: 105.7 kg

DRUGS (1)
  1. GILENYA [Suspect]
     Indication: RELAPSING-REMITTING MULTIPLE SCLEROSIS
     Dosage: 0.5 MG QD, ORAL
     Route: 048
     Dates: start: 20110407, end: 20110407

REACTIONS (3)
  - DYSPEPSIA [None]
  - CHEST DISCOMFORT [None]
  - CHEST PAIN [None]
